FAERS Safety Report 5950865-7 (Version None)
Quarter: 2008Q4

REPORT INFORMATION
  Report Type: 
  Country: None (occurrence: None)
  Receive Date: 20081110
  Receipt Date: 20081023
  Transmission Date: 20090506
  Serious: Yes (Death, Hospitalization)
  Sender: FDA-Public Use
  Company Number: DSA_32457_2008

PATIENT
  Sex: Male

DRUGS (4)
  1. DILTIAZEM [Suspect]
     Dosage: (NOT THE PRESCRIBED AMOUNT)
  2. AMIODARONE HCL [Suspect]
     Dosage: (NOT THE PRESCRIBED AMOUNT)
  3. ACETAMINOPHEN [Concomitant]
  4. KETOPROFEN [Concomitant]

REACTIONS (2)
  - COMPLETED SUICIDE [None]
  - OVERDOSE [None]
